FAERS Safety Report 9161184 (Version 1)
Quarter: 2013Q1

REPORT INFORMATION
  Report Type: Spontaneous
  Country: US (occurrence: US)
  Receive Date: 20130313
  Receipt Date: 20130313
  Transmission Date: 20140127
  Serious: Yes (Other)
  Sender: FDA-Public Use
  Company Number: US-PFIZER INC-2013079449

PATIENT
  Sex: 0

DRUGS (3)
  1. GEODON [Suspect]
     Dosage: UNK
  2. SEROQUEL [Suspect]
     Dosage: UNK
  3. LITHIUM [Suspect]
     Dosage: UNK

REACTIONS (4)
  - Diabetes insipidus [Unknown]
  - Weight decreased [Not Recovered/Not Resolved]
  - Laboratory test abnormal [Unknown]
  - Weight increased [Unknown]
